FAERS Safety Report 13864309 (Version 6)
Quarter: 2018Q2

REPORT INFORMATION
  Report Type: Report from Study
  Country: None (occurrence: US)
  Receive Date: 20170814
  Receipt Date: 20180517
  Transmission Date: 20180711
  Serious: Yes (Other)
  Sender: FDA-Public Use
  Company Number: US-ABBVIE-16K-163-1825432-00

PATIENT
  Sex: Female

DRUGS (1)
  1. HUMIRA [Suspect]
     Active Substance: ADALIMUMAB
     Indication: RHEUMATOID ARTHRITIS
     Route: 058
     Dates: start: 201507, end: 20170613

REACTIONS (9)
  - Wound [Unknown]
  - Allergy to metals [Unknown]
  - Dermatitis allergic [Not Recovered/Not Resolved]
  - Vertebral osteophyte [Recovering/Resolving]
  - Rheumatoid arthritis [Unknown]
  - Herpes zoster [Recovering/Resolving]
  - Back pain [Unknown]
  - Areflexia [Unknown]
  - Hypoaesthesia [Unknown]

NARRATIVE: CASE EVENT DATE: 2015
